FAERS Safety Report 4273775-2 (Version None)
Quarter: 2004Q1

REPORT INFORMATION
  Report Type: 
  Country: None (occurrence: None)
  Receive Date: 20040114
  Receipt Date: 20030404
  Transmission Date: 20041129
  Serious: No
  Sender: FDA-Public Use
  Company Number: 04H-087-0246274-00

PATIENT
  Sex: 0

DRUGS (2)
  1. RITODRINE HYDROCHLORIDE INJECTION (RITODRINE HYDROCHLORIDE) [Suspect]
     Indication: PREMATURE LABOUR
     Dosage: SEE IMAGE
     Route: 042
  2. MAGNESIUM SULFATE [Suspect]
     Indication: PREMATURE LABOUR
     Dosage: INTRAVENOUS
     Route: 042
     Dates: start: 20020101

REACTIONS (6)
  - APGAR SCORE LOW [None]
  - CAESAREAN SECTION [None]
  - FOETAL HEART RATE DECELERATION [None]
  - MATERNAL DRUGS AFFECTING FOETUS [None]
  - NEONATAL RESPIRATORY DISTRESS SYNDROME [None]
  - RHABDOMYOLYSIS [None]
